FAERS Safety Report 7985243-2 (Version None)
Quarter: 2011Q4

REPORT INFORMATION
  Report Type: 
  Country: None (occurrence: None)
  Receive Date: 20111216
  Receipt Date: 20101027
  Transmission Date: 20120403
  Serious: Yes (Other)
  Sender: FDA-Public Use
  Company Number: PHHY2010FR092816

PATIENT
  Sex: Female

DRUGS (1)
  1. ARTEMETHER + BENFLUMETOL [Suspect]
     Indication: MALARIA

REACTIONS (2)
  - LYMPHOPENIA [None]
  - MATERNAL EXPOSURE DURING PREGNANCY [None]
